FAERS Safety Report 10064686 (Version 1)
Quarter: 2014Q2

REPORT INFORMATION
  Report Type: Spontaneous
  Country: US (occurrence: None)
  Receive Date: 20140407
  Receipt Date: 20140407
  Transmission Date: 20141212
  Serious: Yes (Life-Threatening, Hospitalization)
  Sender: FDA-Public Use
  Company Number: None

PATIENT
  Age: 73 Year
  Sex: Male
  Weight: 71.8 kg

DRUGS (2)
  1. HALOPERIDOL [Suspect]
     Indication: PAIN
     Dosage: 1 MG, ONCE, IV?
     Route: 042
     Dates: start: 20140330, end: 20140330
  2. TRAMADOL [Suspect]
     Indication: AGITATION
     Dosage: 50 MG, TID, PO
     Route: 048
     Dates: start: 20140327, end: 20140329

REACTIONS (11)
  - Parkinsonism [None]
  - Respiratory depression [None]
  - Hypotension [None]
  - International normalised ratio abnormal [None]
  - Back pain [None]
  - Hyperthermia [None]
  - Hepatic enzyme increased [None]
  - Blood creatine phosphokinase abnormal [None]
  - Cholestasis [None]
  - Arrhythmia [None]
  - Atrial fibrillation [None]
